FAERS Safety Report 24260890 (Version 2)
Quarter: 2024Q3

REPORT INFORMATION
  Report Type: Spontaneous
  Country: US (occurrence: US)
  Receive Date: 20240828
  Receipt Date: 20240905
  Transmission Date: 20241017
  Serious: Yes (Other)
  Sender: JOHNSON AND JOHNSON
  Company Number: US-BAYER-2024A114818

PATIENT
  Age: 51 Year
  Sex: Female
  Weight: 78.912 kg

DRUGS (12)
  1. RIVAROXABAN [Suspect]
     Active Substance: RIVAROXABAN
     Indication: Product used for unknown indication
     Route: 048
  2. ADEMPAS [Suspect]
     Active Substance: RIOCIGUAT
     Dosage: 0.5 MG, TID
     Route: 048
     Dates: start: 20240715
  3. UBRELVY [Concomitant]
     Active Substance: UBROGEPANT
  4. MAGNESIUM [Concomitant]
     Active Substance: MAGNESIUM
  5. B12 ACTIVE [Concomitant]
  6. POTASSIUM [Concomitant]
     Active Substance: POTASSIUM
  7. DIETARY SUPPLEMENT\HERBALS\INDIAN FRANKINCENSE [Concomitant]
     Active Substance: DIETARY SUPPLEMENT\HERBALS\INDIAN FRANKINCENSE
  8. COENZYME Q10 [Concomitant]
     Active Substance: DIETARY SUPPLEMENT\UBIDECARENONE
  9. GABAPENTIN [Concomitant]
     Active Substance: GABAPENTIN
  10. AIMOVIG [Concomitant]
     Active Substance: ERENUMAB-AOOE
  11. BOTOX [Concomitant]
     Active Substance: ONABOTULINUMTOXINA
  12. TORSEMIDE [Concomitant]
     Active Substance: TORSEMIDE

REACTIONS (3)
  - Haemorrhoidal haemorrhage [Unknown]
  - Migraine [Unknown]
  - Gastrointestinal motility disorder [Unknown]

NARRATIVE: CASE EVENT DATE: 20240101
